FAERS Safety Report 7992397-0 (Version None)
Quarter: 2011Q4

REPORT INFORMATION
  Report Type: 
  Country: None (occurrence: None)
  Receive Date: 20111219
  Receipt Date: 20110520
  Transmission Date: 20120403
  Serious: No
  Sender: FDA-Public Use
  Company Number: US-ASTRAZENECA-2011SE31382

PATIENT
  Age: 52 Year
  Sex: Male
  Weight: 65.8 kg

DRUGS (4)
  1. RAMIPRIL [Concomitant]
  2. ALLOPURINOL [Concomitant]
     Indication: GOUT
  3. CLONAZEPAM [Concomitant]
  4. CRESTOR [Suspect]
     Indication: BLOOD CHOLESTEROL
     Route: 048

REACTIONS (3)
  - ABDOMINAL PAIN UPPER [None]
  - INSOMNIA [None]
  - COELIAC DISEASE [None]
